FAERS Safety Report 10041367 (Version 1)
Quarter: 2014Q1

REPORT INFORMATION
  Report Type: Spontaneous
  Country: US (occurrence: None)
  Receive Date: 20140326
  Receipt Date: 20140326
  Transmission Date: 20141002
  Serious: Yes (Hospitalization)
  Sender: FDA-Public Use
  Company Number: None

PATIENT
  Age: 76 Year
  Sex: Female
  Weight: 59.3 kg

DRUGS (10)
  1. XARELTO [Suspect]
     Indication: ATRIAL FIBRILLATION
  2. XARELTO [Suspect]
     Indication: PROPHYLAXIS
  3. ASPIRIN [Concomitant]
  4. LISINOPRIL [Concomitant]
  5. TIKOSYN [Concomitant]
  6. COREG [Concomitant]
  7. MIRALAX [Concomitant]
  8. MAGNESIUM OXIDE [Concomitant]
  9. LEVOTHYROXINE [Concomitant]
  10. VITAMIN D [Concomitant]

REACTIONS (3)
  - Fall [None]
  - Head injury [None]
  - Headache [None]
